FAERS Safety Report 23666465 (Version 1)
Quarter: 2024Q1

REPORT INFORMATION
  Report Type: Spontaneous
  Country: US (occurrence: US)
  Receive Date: 20240324
  Receipt Date: 20240324
  Transmission Date: 20240409
  Serious: No
  Sender: FDA-Public Use
  Company Number: US-TEVA-VS-3148532

PATIENT

DRUGS (2)
  1. AJOVY [Suspect]
     Active Substance: FREMANEZUMAB-VFRM
     Indication: Product used for unknown indication
     Dosage: 225/1.5 MG/ML
     Route: 065
     Dates: start: 202309
  2. AJOVY [Suspect]
     Active Substance: FREMANEZUMAB-VFRM

REACTIONS (11)
  - Injection site pain [Unknown]
  - Injection site mass [Unknown]
  - Injection site pain [Unknown]
  - Injection site pruritus [Unknown]
  - Injection site erythema [Unknown]
  - Injection site discolouration [Unknown]
  - Injection site bruising [Unknown]
  - Injection site discomfort [Unknown]
  - Injection site swelling [Unknown]
  - Injection site discolouration [Unknown]
  - Feeling hot [Unknown]
